FAERS Safety Report 17578229 (Version 12)
Quarter: 2020Q3

REPORT INFORMATION
  Report Type: Report from Study
  Country: RU (occurrence: RU)
  Receive Date: 20200324
  Receipt Date: 20200820
  Transmission Date: 20201102
  Serious: Yes (Hospitalization)
  Sender: FDA-Public Use
  Company Number: RU-EISAI MEDICAL RESEARCH-EC-2020-071044

PATIENT
  Age: 54 Year
  Sex: Male
  Weight: 81.25 kg

DRUGS (15)
  1. PEMBROLIZUMAB. [Suspect]
     Active Substance: PEMBROLIZUMAB
     Indication: HEPATOCELLULAR CARCINOMA
     Route: 041
     Dates: start: 20190716, end: 20200128
  2. MENADIONE SODIUM BISULFITE [Concomitant]
     Active Substance: MENADIONE
     Dates: start: 201901
  3. AMLODIPINE [Concomitant]
     Active Substance: AMLODIPINE BESYLATE
     Dates: start: 20200110
  4. ALUMINUM HYDROXIDE;MAGNESIUM HYDROXIDE [Concomitant]
     Dates: start: 20191115
  5. LENVATINIB [Suspect]
     Active Substance: LENVATINIB
     Indication: HEPATOCELLULAR CARCINOMA
     Dosage: STARTING DOSE AT 12MG, FLUCTUATED DOSAGE
     Route: 048
     Dates: start: 20190716, end: 20200217
  6. LENVATINIB [Suspect]
     Active Substance: LENVATINIB
     Route: 048
     Dates: start: 20200218, end: 20200223
  7. PEMBROLIZUMAB. [Suspect]
     Active Substance: PEMBROLIZUMAB
     Route: 041
     Dates: start: 20200218, end: 20200218
  8. MINERALS PLUS VITAMINS (UNSPECIFIED) [Concomitant]
     Dates: start: 20191115
  9. PEMBROLIZUMAB. [Suspect]
     Active Substance: PEMBROLIZUMAB
     Route: 041
     Dates: start: 20200403
  10. LOSARTAN POTASSIUM. [Concomitant]
     Active Substance: LOSARTAN POTASSIUM
     Dates: start: 20200110
  11. PANTOPRAZOLE [Concomitant]
     Active Substance: PANTOPRAZOLE
     Dates: start: 20191115
  12. LENVATINIB [Suspect]
     Active Substance: LENVATINIB
     Route: 048
     Dates: start: 20200403
  13. GLYCYRRHIZIN PHOSPHOLIPIDS [Concomitant]
     Dates: start: 201801
  14. SPIRONOLACTONE. [Concomitant]
     Active Substance: SPIRONOLACTONE
     Dates: start: 201801
  15. URSODIOL. [Concomitant]
     Active Substance: URSODIOL
     Dates: start: 201801

REACTIONS (1)
  - Gastrointestinal haemorrhage [Recovered/Resolved]

NARRATIVE: CASE EVENT DATE: 20200223
